FAERS Safety Report 5055198-1 (Version None)
Quarter: 2006Q3

REPORT INFORMATION
  Report Type: 
  Country: None (occurrence: None)
  Receive Date: 20060714
  Receipt Date: 20060703
  Transmission Date: 20061208
  Serious: Yes (Death, Life-Threatening, Hospitalization)
  Sender: FDA-Public Use
  Company Number: HQWYE267419JUN06

PATIENT
  Age: 81 Year
  Sex: Male

DRUGS (7)
  1. CORDARONE [Suspect]
     Indication: ATRIAL FIBRILLATION
     Dosage: 200 MG 1X PER 1 DAY ORAL
     Route: 048
     Dates: start: 19970101, end: 20060101
  2. ISOPTIN [Concomitant]
  3. ATACAND [Concomitant]
  4. LASIX [Concomitant]
  5. ISMO - SLOW RELEASE (ISOSORBIDE MONONITRATE) [Concomitant]
  6. LIPITOR [Concomitant]
  7. WARFARIN SODIUM [Concomitant]

REACTIONS (4)
  - PNEUMONIA [None]
  - PNEUMONITIS [None]
  - PSEUDOMONAL SEPSIS [None]
  - RESPIRATORY FAILURE [None]
